FAERS Safety Report 23741952 (Version 2)
Quarter: 2024Q2

REPORT INFORMATION
  Report Type: Spontaneous
  Country: GR (occurrence: GR)
  Receive Date: 20240415
  Receipt Date: 20240422
  Transmission Date: 20240715
  Serious: Yes (Other)
  Sender: FDA-Public Use
  Company Number: GR-GILEAD-2024-0668828

PATIENT
  Age: 28 Year
  Sex: Male

DRUGS (7)
  1. TRUVADA [Suspect]
     Active Substance: EMTRICITABINE\TENOFOVIR DISOPROXIL FUMARATE
     Indication: HIV infection
     Dosage: 50 MG X2
     Route: 065
  2. DOLUTEGRAVIR [Concomitant]
     Active Substance: DOLUTEGRAVIR
     Indication: HIV infection
  3. ISONIAZID [Concomitant]
     Active Substance: ISONIAZID
  4. RIFAMPIN [Concomitant]
     Active Substance: RIFAMPIN
  5. PYRAZINAMIDE [Concomitant]
     Active Substance: PYRAZINAMIDE
  6. ETHAMBUTOL [Concomitant]
     Active Substance: ETHAMBUTOL HYDROCHLORIDE
  7. LEVOFLOXACIN [Concomitant]
     Active Substance: LEVOFLOXACIN

REACTIONS (2)
  - Immune reconstitution inflammatory syndrome associated tuberculosis [Not Recovered/Not Resolved]
  - Treatment noncompliance [Unknown]
